FAERS Safety Report 5214675-0 (Version None)
Quarter: 2006Q4

REPORT INFORMATION
  Report Type: 
  Country: None (occurrence: None)
  Receive Date: 20061108
  Receipt Date: 20060623
  Transmission Date: 20070319
  Serious: Yes (Hospitalization)
  Sender: FDA-Public Use
  Company Number: US200601005082

PATIENT
  Age: 52 Year
  Sex: Female
  Weight: 81.6 kg

DRUGS (8)
  1. ZYPREXA [Suspect]
     Indication: DRUG USE FOR UNKNOWN INDICATION
     Dosage: 5 MG, DAILY (1/D), ORAL; SEE IMAGE
     Route: 048
     Dates: start: 20020201, end: 20020201
  2. ZYPREXA [Suspect]
     Indication: DRUG USE FOR UNKNOWN INDICATION
     Dosage: 5 MG, DAILY (1/D), ORAL; SEE IMAGE
     Route: 048
     Dates: start: 20020202
  3. ZYPREXA [Suspect]
     Indication: DRUG USE FOR UNKNOWN INDICATION
     Dosage: 5 MG, DAILY (1/D), ORAL; SEE IMAGE
     Route: 048
     Dates: start: 20040101
  4. PROZAC [Suspect]
     Indication: DRUG USE FOR UNKNOWN INDICATION
     Dosage: 20 MG, DAILY (1/D); SEE IMAGE
     Dates: start: 20020128, end: 20020201
  5. PROZAC [Suspect]
     Indication: DRUG USE FOR UNKNOWN INDICATION
     Dosage: 20 MG, DAILY (1/D); SEE IMAGE
     Dates: start: 20020201
  6. TRAZODONE HCL [Concomitant]
  7. ATIVAN [Concomitant]
  8. PROPRANOLOL [Concomitant]

REACTIONS (3)
  - AKATHISIA [None]
  - DIABETES MELLITUS NON-INSULIN-DEPENDENT [None]
  - INSOMNIA [None]
